FAERS Safety Report 22336584 (Version 1)
Quarter: 2023Q2

REPORT INFORMATION
  Report Type: Report from Study
  Country: ZA (occurrence: ZA)
  Receive Date: 20230518
  Receipt Date: 20230518
  Transmission Date: 20230722
  Serious: Yes (Hospitalization)
  Sender: FDA-Public Use
  Company Number: ZA-ABBVIE-4770703

PATIENT
  Age: 5 Year
  Sex: Male

DRUGS (2)
  1. HUMIRA [Suspect]
     Active Substance: ADALIMUMAB
     Indication: Crohn^s disease
     Dosage: THERAPY CESSATION DATE: 2023 AT LEAST.
     Route: 058
     Dates: start: 20230201
  2. HUMIRA [Suspect]
     Active Substance: ADALIMUMAB
     Dosage: DOSE INCREASED/THERAPY RESTART DATE: 2023 AT LEAST
     Route: 058

REACTIONS (1)
  - Blood albumin decreased [Recovering/Resolving]

NARRATIVE: CASE EVENT DATE: 20230501
